FAERS Safety Report 8585108-1 (Version None)
Quarter: 2012Q3

REPORT INFORMATION
  Report Type: 
  Country: None (occurrence: None)
  Receive Date: 20120810
  Receipt Date: 20120730
  Transmission Date: 20120928
  Serious: Yes (Hospitalization, Other)
  Sender: FDA-Public Use
  Company Number: US-GENZYME-LEUK-1000122

PATIENT
  Age: 82 Year
  Sex: Male
  Weight: 77.3 kg

DRUGS (9)
  1. ASPIRIN [Concomitant]
     Indication: PRODUCT USED FOR UNKNOWN INDICATION
     Dosage: 81 MG, QD
     Route: 065
  2. DOXAZOSIN MESYLATE [Concomitant]
     Dosage: 6 MG, QD
     Route: 065
  3. PRESERVISION EYE VITAMIN AND MINERAL SUPPL. [Concomitant]
     Indication: PRODUCT USED FOR UNKNOWN INDICATION
     Dosage: UNK
     Route: 065
  4. PREDNISONE TAB [Concomitant]
     Indication: PRODUCT USED FOR UNKNOWN INDICATION
     Dosage: 60 MG, QD
     Route: 065
  5. DOXAZOSIN MESYLATE [Concomitant]
     Indication: PRODUCT USED FOR UNKNOWN INDICATION
     Dosage: UNK
     Route: 065
  6. PRILOSEC [Concomitant]
     Indication: PRODUCT USED FOR UNKNOWN INDICATION
     Dosage: 20 MG, QD
     Route: 065
  7. LEUKINE [Suspect]
     Indication: MALIGNANT MELANOMA
     Dosage: 250 MCG, QD, ON DAYS 1-14
     Route: 058
     Dates: start: 20110421, end: 20110707
  8. IPILIMUMAB [Suspect]
     Indication: MALIGNANT MELANOMA
     Dosage: 10 MG/KG OVER 90 MIN ON DAY 1
     Route: 042
     Dates: start: 20110421, end: 20110624
  9. MAGNESIUM [Concomitant]
     Indication: PRODUCT USED FOR UNKNOWN INDICATION
     Dosage: 400 MG, BID
     Route: 065

REACTIONS (5)
  - HAEMATOCHEZIA [None]
  - COLITIS [None]
  - PRESYNCOPE [None]
  - DIARRHOEA [None]
  - ARTHRALGIA [None]
